FAERS Safety Report 6150280-X (Version None)
Quarter: 2009Q2

REPORT INFORMATION
  Report Type: 
  Country: None (occurrence: None)
  Receive Date: 20090408
  Receipt Date: 20090408
  Transmission Date: 20091009
  Serious: Yes (Death)
  Sender: FDA-Public Use
  Company Number: None

PATIENT
  Age: 59 Year
  Sex: Male
  Weight: 89.3586 kg

DRUGS (1)
  1. FENTANYL TRANSDERMAL SYSTEM [Suspect]
     Indication: PAIN
     Dosage: 2 PATCHES EVERY 72 HRS TRANSDERMAL
     Route: 062
     Dates: start: 20090120, end: 20090320

REACTIONS (3)
  - COMA [None]
  - DEVICE LEAKAGE [None]
  - PRODUCT QUALITY ISSUE [None]
